FAERS Safety Report 18697406 (Version 2)
Quarter: 2021Q1

REPORT INFORMATION
  Report Type: Spontaneous
  Country: US (occurrence: US)
  Receive Date: 20210104
  Receipt Date: 20210114
  Transmission Date: 20210419
  Serious: No
  Sender: FDA-Public Use
  Company Number: US-PFIZER INC-2020517201

PATIENT
  Age: 61 Year
  Sex: Female
  Weight: 73.47 kg

DRUGS (2)
  1. IBRANCE [Suspect]
     Active Substance: PALBOCICLIB
     Indication: BREAST CANCER FEMALE
     Dosage: 125 MG, CYCLIC (1 DAILY FOR 21 DAYS)
     Route: 048
     Dates: start: 20201130
  2. IBRANCE [Suspect]
     Active Substance: PALBOCICLIB
     Dosage: 125 MG, CYCLIC (1 DAILY FOR 21 DAYS)
     Route: 048
     Dates: start: 20201130

REACTIONS (5)
  - White blood cell count decreased [Unknown]
  - Nausea [Unknown]
  - Cough [Unknown]
  - Infection [Unknown]
  - Stomatitis [Unknown]

NARRATIVE: CASE EVENT DATE: 2020
